FAERS Safety Report 11762816 (Version 1)
Quarter: 2015Q4

REPORT INFORMATION
  Report Type: Spontaneous
  Country: US (occurrence: US)
  Receive Date: 20151120
  Receipt Date: 20151120
  Transmission Date: 20160304
  Serious: No
  Sender: FDA-Public Use
  Company Number: US-ELI_LILLY_AND_COMPANY-US201302002609

PATIENT
  Sex: Female

DRUGS (3)
  1. FORTEO [Suspect]
     Active Substance: TERIPARATIDE
     Dosage: 20 UG, QD
     Dates: end: 201208
  2. FORTEO [Suspect]
     Active Substance: TERIPARATIDE
     Indication: OSTEOPOROSIS
     Dosage: 20 UG, QD
     Dates: start: 201104
  3. ENBREL [Concomitant]
     Active Substance: ETANERCEPT
     Indication: ARTHRITIS

REACTIONS (7)
  - Oedema peripheral [Unknown]
  - Pain in extremity [Unknown]
  - Gingival disorder [Unknown]
  - Decreased immune responsiveness [Unknown]
  - Tooth disorder [Unknown]
  - Oral disorder [Unknown]
  - Tooth discolouration [Unknown]
